FAERS Safety Report 11135480 (Version 1)
Quarter: 2015Q2

REPORT INFORMATION
  Report Type: Spontaneous
  Country: US (occurrence: None)
  Receive Date: 20150521
  Receipt Date: 20150521
  Transmission Date: 20150821
  Serious: Yes (Hospitalization, Other)
  Sender: FDA-Public Use
  Company Number: ADR-2015-00987

PATIENT
  Age: 52 Year
  Sex: Female

DRUGS (2)
  1. BACLOFEN INTRATHECAL 500 MCG/ML [Suspect]
     Active Substance: BACLOFEN
     Indication: MUSCLE SPASTICITY
     Dosage: 125 MCG/DAY
  2. ORAL BACLOFEN [Suspect]
     Active Substance: BACLOFEN
     Indication: MUSCLE SPASTICITY

REACTIONS (8)
  - Agitation [None]
  - Mental status changes [None]
  - Restlessness [None]
  - Condition aggravated [None]
  - Anxiety [None]
  - Muscle spasticity [None]
  - Addison^s disease [None]
  - Confusional state [None]

NARRATIVE: CASE EVENT DATE: 20150511
